FAERS Safety Report 17366809 (Version 1)
Quarter: 2020Q1

REPORT INFORMATION
  Report Type: Report from Study
  Country: JP (occurrence: JP)
  Receive Date: 20200204
  Receipt Date: 20200204
  Transmission Date: 20200409
  Serious: Yes (Other)
  Sender: FDA-Public Use
  Company Number: JP-ACTELION-A-CH2019-195050

PATIENT
  Age: 9 Year
  Sex: Female
  Weight: 14 kg

DRUGS (4)
  1. REVATIO [Concomitant]
     Active Substance: SILDENAFIL CITRATE
     Dosage: 11.3 MG, TID
     Route: 048
  2. PROCYLIN [Concomitant]
     Active Substance: BERAPROST SODIUM
     Dosage: 6.6 MCG, TID
  3. OPSUMIT [Suspect]
     Active Substance: MACITENTAN
     Indication: PULMONARY ARTERIAL HYPERTENSION
     Dosage: 3 MG, QD
     Route: 048
     Dates: start: 20161005
  4. OXYGEN. [Concomitant]
     Active Substance: OXYGEN

REACTIONS (2)
  - Shock [Recovered/Resolved]
  - Hypotension [Recovered/Resolved]

NARRATIVE: CASE EVENT DATE: 20170825
